FAERS Safety Report 26011232 (Version 2)
Quarter: 2025Q4

REPORT INFORMATION
  Report Type: Spontaneous
  Country: GB (occurrence: GB)
  Receive Date: 20251107
  Receipt Date: 20251226
  Transmission Date: 20260118
  Serious: Yes (Hospitalization)
  Sender: INSUD PHARMA
  Company Number: GB-EXELTIS PHARMACEUTICAL HOLDING, S.L.-2510GB08717

PATIENT
  Sex: Female

DRUGS (3)
  1. SLYND [Suspect]
     Active Substance: DROSPIRENONE
     Indication: Menopausal symptoms prophylaxis
     Dosage: 4 MILLIGRAM, QD
     Route: 048
     Dates: start: 20251020
  2. SLYND [Suspect]
     Active Substance: DROSPIRENONE
     Dosage: UNK
  3. SLYND [Suspect]
     Active Substance: DROSPIRENONE
     Dosage: UNK
     Dates: start: 20251214

REACTIONS (12)
  - Product use in unapproved indication [Unknown]
  - Hospitalisation [Unknown]
  - Product dose omission issue [Not Recovered/Not Resolved]
  - Anxiety [Not Recovered/Not Resolved]
  - Anger [Not Recovered/Not Resolved]
  - Crying [Not Recovered/Not Resolved]
  - Condition aggravated [Not Recovered/Not Resolved]
  - Fatigue [Not Recovered/Not Resolved]
  - Decreased activity [Not Recovered/Not Resolved]
  - Hormone level abnormal [Not Recovered/Not Resolved]
  - Fatigue [Not Recovered/Not Resolved]
  - Anxiety [Not Recovered/Not Resolved]

NARRATIVE: CASE EVENT DATE: 20251020
